FAERS Safety Report 11062286 (Version 4)
Quarter: 2015Q2

REPORT INFORMATION
  Report Type: Report from Study
  Country: CA (occurrence: CA)
  Receive Date: 20150424
  Receipt Date: 20150529
  Transmission Date: 20150821
  Serious: Yes (Hospitalization, Other)
  Sender: FDA-Public Use
  Company Number: CA-SA-2015SA050769

PATIENT
  Sex: Female
  Weight: 89.6 kg

DRUGS (13)
  1. FABRAZYME [Suspect]
     Active Substance: AGALSIDASE BETA
     Indication: FABRY^S DISEASE
     Route: 041
  2. ALLOPURINOL. [Concomitant]
     Active Substance: ALLOPURINOL
     Indication: GOUT
  3. BETAHISTINE [Concomitant]
     Active Substance: BETAHISTINE
     Indication: DIZZINESS
  4. LASIX [Concomitant]
     Active Substance: FUROSEMIDE
     Indication: FLUID RETENTION
  5. COLCHICINE. [Concomitant]
     Active Substance: COLCHICINE
     Indication: GOUT
     Dosage: PRN
  6. WARFARIN [Concomitant]
     Active Substance: WARFARIN
     Indication: PROPHYLAXIS
  7. CANDESARTAN [Concomitant]
     Active Substance: CANDESARTAN
     Indication: HYPERTENSION
     Dosage: 4 TABLETS
  8. GLICLAZIDE [Concomitant]
     Active Substance: GLICLAZIDE
  9. RISEDRONATE [Concomitant]
     Active Substance: RISEDRONATE SODIUM
  10. FABRAZYME [Suspect]
     Active Substance: AGALSIDASE BETA
     Indication: FABRY^S DISEASE
     Route: 041
  11. METFORMIN [Concomitant]
     Active Substance: METFORMIN HYDROCHLORIDE
  12. RABEPRAZOLE [Concomitant]
     Active Substance: RABEPRAZOLE
  13. FABRAZYME [Suspect]
     Active Substance: AGALSIDASE BETA
     Indication: FABRY^S DISEASE
     Route: 041

REACTIONS (6)
  - Fall [Unknown]
  - Hip fracture [Recovering/Resolving]
  - Oedema peripheral [Not Recovered/Not Resolved]
  - Spinal cord injury [Recovering/Resolving]
  - Femur fracture [Recovering/Resolving]
  - Gout [Recovered/Resolved]

NARRATIVE: CASE EVENT DATE: 2015
